FAERS Safety Report 24157460 (Version 1)
Quarter: 2024Q3

REPORT INFORMATION
  Report Type: Spontaneous
  Country: US (occurrence: US)
  Receive Date: 20240731
  Receipt Date: 20240731
  Transmission Date: 20241017
  Serious: No
  Sender: AMGEN
  Company Number: US-AMGEN-USASP2024151461

PATIENT
  Age: 59 Year
  Sex: Male
  Weight: 93.9 kg

DRUGS (2)
  1. OTEZLA [Suspect]
     Active Substance: APREMILAST
     Indication: Product used for unknown indication
     Dosage: UNK
     Route: 065
  2. VIVITROL [Concomitant]
     Active Substance: NALTREXONE
     Indication: Alcoholism
     Dosage: 380 MILLIGRAM, EVERY FOUR WEEKS OR EVERY MONTH
     Route: 065

REACTIONS (1)
  - Drug ineffective [Unknown]
